FAERS Safety Report 14718104 (Version 5)
Quarter: 2020Q1

REPORT INFORMATION
  Report Type: Report from Study
  Country: US (occurrence: US)
  Receive Date: 20180404
  Receipt Date: 20200114
  Transmission Date: 20200409
  Serious: Yes (Life-Threatening, Hospitalization, Other)
  Sender: FDA-Public Use
  Company Number: US-SA-2018SA037056

PATIENT
  Age: 63 Year
  Sex: Female

DRUGS (3)
  1. DUPILUMAB [Suspect]
     Active Substance: DUPILUMAB
     Dosage: 300 MG, QOW
     Route: 058
     Dates: start: 201705
  2. DUPILUMAB [Suspect]
     Active Substance: DUPILUMAB
     Dosage: 300 MG, QOW
     Route: 058
     Dates: start: 2016
  3. DUPILUMAB [Suspect]
     Active Substance: DUPILUMAB
     Indication: DERMATITIS ATOPIC
     Dosage: UNK
     Route: 058
     Dates: start: 20160101, end: 20160101

REACTIONS (11)
  - Malaise [Not Recovered/Not Resolved]
  - Decreased activity [Unknown]
  - Bronchitis [Unknown]
  - Rectal haemorrhage [Unknown]
  - Pain in extremity [Unknown]
  - Haemorrhoids [Unknown]
  - Hypertension [Unknown]
  - Conjunctivitis [Recovered/Resolved]
  - Colitis [Unknown]
  - Ulcer haemorrhage [Unknown]
  - Product dose omission [Unknown]

NARRATIVE: CASE EVENT DATE: 2019
